FAERS Safety Report 5536562-0 (Version None)
Quarter: 2007Q4

REPORT INFORMATION
  Report Type: 
  Country: None (occurrence: None)
  Receive Date: 20071204
  Receipt Date: 20071116
  Transmission Date: 20080405
  Serious: Yes (Other)
  Sender: FDA-Public Use
  Company Number: DSA_30948_2007

PATIENT
  Sex: Female

DRUGS (4)
  1. LORAZEPAM [Suspect]
     Indication: ANXIETY
     Dosage: ORAL
     Route: 048
     Dates: start: 20071020, end: 20071119
  2. ZOPICLONE (ZOPICLONE) 7.5 MG [Suspect]
     Indication: SLEEP DISORDER
     Dosage: 7.5 MG QD ORAL
     Route: 048
     Dates: start: 20070101
  3. LEVOTHYROXINE SODIUM [Concomitant]
  4. LYRICA [Concomitant]

REACTIONS (4)
  - DRUG DEPENDENCE [None]
  - DRUG WITHDRAWAL SYNDROME [None]
  - ELECTROCARDIOGRAM QT PROLONGED [None]
  - SLEEP DISORDER [None]
